FAERS Safety Report 8915772 (Version 1)
Quarter: 2012Q4

REPORT INFORMATION
  Report Type: Report from Study
  Country: BE (occurrence: BE)
  Receive Date: 20121119
  Receipt Date: 20121119
  Transmission Date: 20130627
  Serious: Yes (Hospitalization)
  Sender: FDA-Public Use
  Company Number: BE-ABBOTT-12P-013-1006879-00

PATIENT
  Age: 28 Year
  Sex: Male

DRUGS (4)
  1. HUMIRA [Suspect]
     Indication: CROHN^S DISEASE
     Dosage: Baseline
     Route: 058
     Dates: start: 20080402, end: 20080402
  2. HUMIRA [Suspect]
     Dosage: Week 2
     Route: 058
  3. HUMIRA [Suspect]
     Route: 058
     Dates: end: 200805
  4. HUMIRA [Suspect]
     Route: 058
     Dates: start: 201111

REACTIONS (1)
  - Intestinal obstruction [Unknown]
